FAERS Safety Report 7701027-4 (Version None)
Quarter: 2011Q3

REPORT INFORMATION
  Report Type: 
  Country: None (occurrence: None)
  Receive Date: 20110822
  Receipt Date: 20110811
  Transmission Date: 20111222
  Serious: No
  Sender: FDA-Public Use
  Company Number: US-JNJFOC-20110806536

PATIENT
  Sex: Female

DRUGS (6)
  1. UNKNOWN MEDICATION [Concomitant]
     Indication: ARTHRITIS
     Route: 048
  2. UNKNOWN MEDICATION [Concomitant]
     Indication: THYROID DISORDER
     Route: 048
  3. FENTANYL-100 [Suspect]
     Indication: BACK PAIN
     Route: 062
     Dates: start: 20110101, end: 20110101
  4. DURAGESIC-100 [Suspect]
     Indication: BACK PAIN
     Route: 062
     Dates: start: 20000101, end: 20110101
  5. DURAGESIC-100 [Suspect]
     Route: 062
     Dates: start: 20110101
  6. UNKNOWN MEDICATION [Concomitant]
     Indication: MOUTH ULCERATION
     Route: 048
     Dates: start: 19600101

REACTIONS (3)
  - WRONG TECHNIQUE IN DRUG USAGE PROCESS [None]
  - PAIN [None]
  - PRODUCT ADHESION ISSUE [None]
